FAERS Safety Report 9118683 (Version 2)
Quarter: 2013Q1

REPORT INFORMATION
  Report Type: Spontaneous
  Country: FR (occurrence: FR)
  Receive Date: 20130226
  Receipt Date: 20130325
  Transmission Date: 20140127
  Serious: Yes (Death, Hospitalization)
  Sender: FDA-Public Use
  Company Number: US-SHIRE-ALL1-2013-00998

PATIENT
  Age: 85 Year
  Sex: Male

DRUGS (2)
  1. FOSRENOL [Suspect]
     Indication: PRODUCT USED FOR UNKNOWN INDICATION
     Dosage: 750 MG, UNKNOWN
     Route: 048
     Dates: start: 2013
  2. FOSRENOL [Suspect]
     Dosage: 500 MG, UNKNOWN
     Route: 048
     Dates: start: 2013

REACTIONS (4)
  - Cardiac disorder [Fatal]
  - Subileus [Unknown]
  - Lung disorder [Unknown]
  - Wrong technique in drug usage process [Unknown]
